FAERS Safety Report 10006136 (Version 1)
Quarter: 2014Q1

REPORT INFORMATION
  Report Type: Spontaneous
  Country: US (occurrence: US)
  Receive Date: 20140313
  Receipt Date: 20140313
  Transmission Date: 20141002
  Serious: Yes (Other)
  Sender: FDA-Public Use
  Company Number: US-BAYER-2014-036875

PATIENT
  Age: 48 Year
  Sex: Female
  Weight: 95.24 kg

DRUGS (1)
  1. YAZ [Suspect]
     Dosage: ONE DAILY

REACTIONS (1)
  - Deep vein thrombosis [None]
